FAERS Safety Report 25739881 (Version 1)
Quarter: 2025Q3

REPORT INFORMATION
  Report Type: Spontaneous
  Country: EU (occurrence: EU)
  Receive Date: 20250829
  Receipt Date: 20250829
  Transmission Date: 20251020
  Serious: Yes (Other)
  Sender: MYLAN
  Company Number: EU-MYLANLABS-2025M1071871

PATIENT
  Age: 7 Decade
  Sex: Female

DRUGS (23)
  1. IMATINIB [Suspect]
     Active Substance: IMATINIB
     Indication: B precursor type acute leukaemia
  2. IMATINIB [Suspect]
     Active Substance: IMATINIB
  3. IMATINIB [Suspect]
     Active Substance: IMATINIB
  4. IMATINIB [Suspect]
     Active Substance: IMATINIB
  5. IMATINIB [Suspect]
     Active Substance: IMATINIB
     Dosage: UNK, QD, 200-400?MG
     Dates: start: 202107
  6. IMATINIB [Suspect]
     Active Substance: IMATINIB
  7. DASATINIB [Suspect]
     Active Substance: DASATINIB
     Indication: B precursor type acute leukaemia
     Dosage: 140 MILLIGRAM, QD
     Dates: start: 202307, end: 2023
  8. DASATINIB [Suspect]
     Active Substance: DASATINIB
     Dosage: 100 MILLIGRAM, QD
     Dates: start: 2023
  9. PONATINIB [Suspect]
     Active Substance: PONATINIB
     Indication: B precursor type acute leukaemia
     Dosage: 45 MILLIGRAM, QD
     Dates: start: 202401
  10. DEXAMETHASONE [Concomitant]
     Active Substance: DEXAMETHASONE
     Indication: B precursor type acute leukaemia
  11. DEXAMETHASONE [Concomitant]
     Active Substance: DEXAMETHASONE
     Dosage: 40 MILLIGRAM, QD
     Dates: start: 202307
  12. VINCRISTINE [Concomitant]
     Active Substance: VINCRISTINE
     Indication: B precursor type acute leukaemia
  13. RITUXIMAB [Concomitant]
     Active Substance: RITUXIMAB
     Indication: B precursor type acute leukaemia
  14. RITUXIMAB [Concomitant]
     Active Substance: RITUXIMAB
  15. RITUXIMAB [Concomitant]
     Active Substance: RITUXIMAB
  16. RITUXIMAB [Concomitant]
     Active Substance: RITUXIMAB
  17. RITUXIMAB [Concomitant]
     Active Substance: RITUXIMAB
  18. METHOTREXATE [Concomitant]
     Active Substance: METHOTREXATE
     Indication: B precursor type acute leukaemia
  19. METHOTREXATE [Concomitant]
     Active Substance: METHOTREXATE
  20. PEG/L-ASPARAGINASE [Concomitant]
     Active Substance: PEGASPARGASE
     Indication: B precursor type acute leukaemia
  21. PEG/L-ASPARAGINASE [Concomitant]
     Active Substance: PEGASPARGASE
  22. CYTARABINE [Concomitant]
     Active Substance: CYTARABINE
     Indication: B precursor type acute leukaemia
  23. CYTARABINE [Concomitant]
     Active Substance: CYTARABINE

REACTIONS (4)
  - Haematotoxicity [Unknown]
  - Gastrointestinal toxicity [Unknown]
  - Drug resistance [Unknown]
  - Disease progression [Unknown]

NARRATIVE: CASE EVENT DATE: 20230101
